FAERS Safety Report 12749111 (Version 13)
Quarter: 2018Q2

REPORT INFORMATION
  Report Type: Spontaneous
  Country: US (occurrence: US)
  Receive Date: 20160915
  Receipt Date: 20180511
  Transmission Date: 20180711
  Serious: Yes (Hospitalization, Other)
  Sender: FDA-Public Use
  Company Number: US-ASTELLAS-2016US012272

PATIENT
  Age: 79 Year
  Sex: Male

DRUGS (1)
  1. XTANDI [Suspect]
     Active Substance: ENZALUTAMIDE
     Indication: PROSTATE CANCER
     Route: 048
     Dates: start: 201603

REACTIONS (38)
  - Dental caries [Not Recovered/Not Resolved]
  - Vision blurred [Not Recovered/Not Resolved]
  - Tongue disorder [Unknown]
  - Dry mouth [Not Recovered/Not Resolved]
  - Anxiety [Unknown]
  - Retinal detachment [Not Recovered/Not Resolved]
  - Nasal congestion [Not Recovered/Not Resolved]
  - Device related infection [Recovered/Resolved]
  - Weight decreased [Not Recovered/Not Resolved]
  - Dysgeusia [Not Recovered/Not Resolved]
  - Insomnia [Unknown]
  - Asthenia [Not Recovered/Not Resolved]
  - Urinary retention [Unknown]
  - Urinary tract disorder [Not Recovered/Not Resolved]
  - Malignant neoplasm progression [Not Recovered/Not Resolved]
  - Arthralgia [Not Recovered/Not Resolved]
  - Staphylococcal infection [Unknown]
  - Hyperchlorhydria [Not Recovered/Not Resolved]
  - Motion sickness [Unknown]
  - Tooth disorder [Unknown]
  - Hypotonia [Unknown]
  - Alopecia [Not Recovered/Not Resolved]
  - Urethral intrinsic sphincter deficiency [Unknown]
  - Muscle atrophy [Unknown]
  - Urinary tract infection [Not Recovered/Not Resolved]
  - Constipation [Not Recovered/Not Resolved]
  - Cataract [Not Recovered/Not Resolved]
  - Gait disturbance [Unknown]
  - Ageusia [Unknown]
  - Dyspnoea [Not Recovered/Not Resolved]
  - Fatigue [Not Recovered/Not Resolved]
  - Drug dose omission [Unknown]
  - Prostate infection [Unknown]
  - Muscle spasms [Unknown]
  - Skin haemorrhage [Not Recovered/Not Resolved]
  - Full blood count decreased [Unknown]
  - Skin wrinkling [Not Recovered/Not Resolved]
  - Abdominal discomfort [Unknown]

NARRATIVE: CASE EVENT DATE: 201603
